FAERS Safety Report 9371034 (Version 3)
Quarter: 2014Q1

REPORT INFORMATION
  Report Type: Report from Study
  Country: GB (occurrence: GB)
  Receive Date: 20130627
  Receipt Date: 20140314
  Transmission Date: 20141002
  Serious: Yes (Other)
  Sender: FDA-Public Use
  Company Number: GB-ROCHE-1242142

PATIENT
  Age: 92 Year
  Sex: Female
  Weight: 54 kg

DRUGS (6)
  1. RANIBIZUMAB [Suspect]
     Indication: PRODUCT USED FOR UNKNOWN INDICATION
     Route: 065
     Dates: start: 20110713
  2. RANIBIZUMAB [Suspect]
     Route: 065
     Dates: start: 20130306
  3. RANIBIZUMAB [Suspect]
     Route: 065
     Dates: start: 20130403
  4. FUROSEMIDE [Concomitant]
  5. RAMIPRIL [Concomitant]
  6. LANSOPRAZOLE [Concomitant]

REACTIONS (1)
  - Transient ischaemic attack [Recovered/Resolved]
